FAERS Safety Report 10081734 (Version 11)
Quarter: 2015Q2

REPORT INFORMATION
  Report Type: Report from Study
  Country: US (occurrence: US)
  Receive Date: 20140416
  Receipt Date: 20150624
  Transmission Date: 20150821
  Serious: Yes (Hospitalization)
  Sender: FDA-Public Use
  Company Number: US-ACTELION-A-NJ2014-97170

PATIENT
  Age: 55 Year
  Sex: Female

DRUGS (4)
  1. TRACLEER [Suspect]
     Active Substance: BOSENTAN\BOSENTAN MONOHYDRATE
     Indication: PULMONARY ARTERIAL HYPERTENSION
     Dosage: 125 MG, UNK
     Route: 048
  2. VELETRI [Suspect]
     Active Substance: EPOPROSTENOL
     Indication: PULMONARY ARTERIAL HYPERTENSION
     Dosage: 19.17 NG/KG, PER MIN
     Route: 042
     Dates: start: 20150202
  3. FLOLAN [Concomitant]
     Active Substance: EPOPROSTENOL SODIUM
  4. VELETRI [Suspect]
     Active Substance: EPOPROSTENOL
     Dosage: 32 NG/KG, UNK
     Route: 042

REACTIONS (14)
  - Pyrexia [Recovered/Resolved]
  - Acute respiratory failure [Unknown]
  - Pleural effusion [Recovered/Resolved]
  - Fluid overload [Unknown]
  - Hyperlipidaemia [Unknown]
  - Upper respiratory tract infection [Recovered/Resolved]
  - Chronic obstructive pulmonary disease [Recovered/Resolved]
  - Hypoxia [Unknown]
  - Dyspnoea [Unknown]
  - Hypertension [Unknown]
  - Treatment noncompliance [Unknown]
  - Chills [Recovered/Resolved]
  - Anxiety [Unknown]
  - Pneumonia [Unknown]

NARRATIVE: CASE EVENT DATE: 20140326
